FAERS Safety Report 4787395-4 (Version None)
Quarter: 2005Q3

REPORT INFORMATION
  Report Type: 
  Country: None (occurrence: None)
  Receive Date: 20050926
  Receipt Date: 20050825
  Transmission Date: 20060218
  Serious: No
  Sender: FDA-Public Use
  Company Number: 217267

PATIENT
  Age: 45 Year
  Sex: Female

DRUGS (2)
  1. AVASTIN [Suspect]
     Indication: NON-SMALL CELL LUNG CANCER
     Dates: start: 20050811
  2. ERBITUX (CETUXIMAB) [Concomitant]

REACTIONS (3)
  - DYSPNOEA [None]
  - EAR PAIN [None]
  - LARYNGITIS [None]
